FAERS Safety Report 7472361-0 (Version None)
Quarter: 2011Q2

REPORT INFORMATION
  Report Type: 
  Country: None (occurrence: None)
  Receive Date: 20110511
  Receipt Date: 20110428
  Transmission Date: 20111010
  Serious: Yes (Hospitalization, Other)
  Sender: FDA-Public Use
  Company Number: PHHY2011US36196

PATIENT

DRUGS (1)
  1. VALTURNA [Suspect]

REACTIONS (2)
  - ROAD TRAFFIC ACCIDENT [None]
  - JAW DISORDER [None]
